FAERS Safety Report 4496066-3 (Version None)
Quarter: 2004Q4

REPORT INFORMATION
  Report Type: 
  Country: None (occurrence: None)
  Receive Date: 20041108
  Receipt Date: 20041029
  Transmission Date: 20050328
  Serious: Yes (Hospitalization)
  Sender: FDA-Public Use
  Company Number: TW-MERCK-0411USA00810

PATIENT
  Age: 48 Year
  Sex: Female

DRUGS (8)
  1. PRINIVIL [Suspect]
     Indication: HYPERTENSION
     Route: 048
  2. AMLODIPINE BESYLATE [Concomitant]
     Indication: HYPERTENSION
     Route: 065
  3. NIMODIPINE [Concomitant]
     Indication: HYPERTENSION
     Route: 065
  4. LABETALOL HYDROCHLORIDE [Concomitant]
     Indication: HYPERTENSION
     Route: 065
  5. TIZANIDINE HYDROCHLORIDE [Suspect]
     Indication: HYPERTONIA
     Route: 065
  6. OFLOXACIN [Concomitant]
     Route: 065
  7. THEOPHYLLINE [Concomitant]
     Route: 065
  8. BIOFERMIN [Concomitant]
     Route: 065

REACTIONS (15)
  - AREFLEXIA [None]
  - CEREBRAL HAEMORRHAGE [None]
  - CEREBROVASCULAR ACCIDENT [None]
  - COMA [None]
  - CORNEAL REFLEX DECREASED [None]
  - DECEREBRATION [None]
  - DEPRESSED LEVEL OF CONSCIOUSNESS [None]
  - DRUG INTERACTION [None]
  - HYPERTENSION [None]
  - HYPOTENSION [None]
  - MOVEMENT DISORDER [None]
  - MUSCLE RIGIDITY [None]
  - OPISTHOTONUS [None]
  - RESPIRATORY FAILURE [None]
  - SEPSIS [None]
